FAERS Safety Report 7324573-4 (Version None)
Quarter: 2011Q1

REPORT INFORMATION
  Report Type: 
  Country: None (occurrence: None)
  Receive Date: 20110301
  Receipt Date: 20110224
  Transmission Date: 20110831
  Serious: Yes (Death)
  Sender: FDA-Public Use
  Company Number: US-CELGENEUS-163-21880-11012191

PATIENT
  Sex: Female

DRUGS (12)
  1. LEVOTHYROXINE [Concomitant]
     Route: 065
  2. LIPITOR [Concomitant]
     Route: 065
  3. CYMBALTA [Concomitant]
     Route: 065
  4. PRINIVIL [Concomitant]
     Route: 065
  5. RESTORIL [Concomitant]
     Route: 065
  6. BETAPACE [Concomitant]
     Route: 065
  7. FLECTOR [Concomitant]
     Route: 065
  8. DECADRON [Concomitant]
     Route: 065
  9. GABAPENTIN [Concomitant]
     Route: 065
  10. PLAVIX [Concomitant]
     Route: 065
  11. REVLIMID [Suspect]
     Indication: MULTIPLE MYELOMA
     Dosage: 15 MILLIGRAM
     Route: 048
     Dates: start: 20101007, end: 20101108
  12. REVLIMID [Suspect]
     Dosage: 7.5 MILLIGRAM
     Route: 048
     Dates: start: 20101108, end: 20101220

REACTIONS (1)
  - RENAL FAILURE [None]
